FAERS Safety Report 20786410 (Version 1)
Quarter: 2022Q2

REPORT INFORMATION
  Report Type: Spontaneous
  Country: US (occurrence: None)
  Receive Date: 20220504
  Receipt Date: 20220504
  Transmission Date: 20220721
  Serious: No
  Sender: FDA-Public Use
  Company Number: US-ROCHE-3036694

PATIENT
  Sex: Female
  Weight: 72.640 kg

DRUGS (4)
  1. OCREVUS [Suspect]
     Active Substance: OCRELIZUMAB
     Indication: Relapsing multiple sclerosis
     Dosage: HER MOST RECENT DOSE OF OCREVUS WAS ADMINISTERED IN JAN/2022.
     Route: 042
     Dates: start: 201910
  2. KLONOPIN [Suspect]
     Active Substance: CLONAZEPAM
     Indication: Product used for unknown indication
     Route: 065
  3. ADDERALL [Concomitant]
     Active Substance: AMPHETAMINE ASPARTATE\AMPHETAMINE SULFATE\DEXTROAMPHETAMINE SACCHARATE\DEXTROAMPHETAMINE SULFATE
     Indication: Fatigue
     Dosage: ONGOING: YES
  4. XANAX [Concomitant]
     Active Substance: ALPRAZOLAM

REACTIONS (7)
  - Fatigue [Not Recovered/Not Resolved]
  - Fall [Unknown]
  - Memory impairment [Not Recovered/Not Resolved]
  - Gait disturbance [Not Recovered/Not Resolved]
  - Therapeutic product effect decreased [Unknown]
  - Wrong product administered [Unknown]
  - Therapeutic response decreased [Unknown]

NARRATIVE: CASE EVENT DATE: 20200101
